FAERS Safety Report 4667288-3 (Version None)
Quarter: 2005Q2

REPORT INFORMATION
  Report Type: 
  Country: None (occurrence: None)
  Receive Date: 20050520
  Receipt Date: 20040914
  Transmission Date: 20051028
  Serious: Yes (Other)
  Sender: FDA-Public Use
  Company Number: PHEH2004US09927

PATIENT
  Age: 46 Year
  Sex: Male

DRUGS (1)
  1. ZOMETA [Suspect]
     Indication: LYMPHOMA
     Dosage: 4 MG, UNK

REACTIONS (3)
  - OSTEONECROSIS [None]
  - RADIATION INJURY [None]
  - VASCULAR OCCLUSION [None]
